FAERS Safety Report 11529689 (Version 1)
Quarter: 2015Q3

REPORT INFORMATION
  Report Type: Other
  Country: GB (occurrence: GB)
  Receive Date: 20150921
  Receipt Date: 20150921
  Transmission Date: 20151125
  Serious: Yes (Hospitalization)
  Sender: FDA-Public Use
  Company Number: GB-MYLANLABS-2015M1030427

PATIENT

DRUGS (12)
  1. CODEINE [Concomitant]
     Active Substance: CODEINE
     Dosage: UNK UNK, PRN (15-30MG FOUR TIMES DAILY AS NECESSARY)
     Route: 048
  2. ISOSORBIDE MONONITRATE. [Concomitant]
     Active Substance: ISOSORBIDE MONONITRATE
     Dosage: 30 MG, QD
     Route: 048
  3. ATORVASTATIN [Concomitant]
     Active Substance: ATORVASTATIN
     Dosage: 40 MG, QD (AT NIGHT)
     Route: 048
  4. HYPROMELLOSE [Concomitant]
     Active Substance: HYPROMELLOSES
     Dosage: 1 GTT, QID
     Route: 050
  5. PARACETAMOL [Concomitant]
     Active Substance: ACETAMINOPHEN
     Dosage: 1 G, PRN (1G FOUR TIMES DAILY AS NECESSARY)
     Route: 048
  6. QUININE [Concomitant]
     Active Substance: QUININE
     Dosage: 300 MG, QD (AT NIGHT)
     Route: 048
  7. SERTRALINE [Concomitant]
     Active Substance: SERTRALINE HYDROCHLORIDE
     Dosage: 100 MG, QD
     Route: 048
  8. AMLODIPINE [Suspect]
     Active Substance: AMLODIPINE BESYLATE
     Dosage: 10 MG, QD
     Route: 048
  9. IVABRADINE [Concomitant]
     Active Substance: IVABRADINE
     Dosage: 2.5 MG, BID
     Route: 048
  10. LEVOTHYROXINE. [Concomitant]
     Active Substance: LEVOTHYROXINE
     Dosage: 100 ?G, QD
     Route: 048
  11. OMEPRAZOLE. [Concomitant]
     Active Substance: OMEPRAZOLE
     Dosage: 20 MG, QD
     Route: 048
  12. WARFARIN [Concomitant]
     Active Substance: WARFARIN
     Dosage: UNK (AS PER INTERNATIONAL NORMALISED RATIO)
     Route: 048

REACTIONS (1)
  - Headache [Recovered/Resolved]
